FAERS Safety Report 9350942 (Version 1)
Quarter: 2013Q2

REPORT INFORMATION
  Report Type: Report from Study
  Country: MX (occurrence: MX)
  Receive Date: 20130617
  Receipt Date: 20130617
  Transmission Date: 20140414
  Serious: Yes (Death, Hospitalization)
  Sender: FDA-Public Use
  Company Number: MX-SANOFI-AVENTIS-2013SA058800

PATIENT
  Age: 69 Year
  Sex: Female
  Weight: 67 kg

DRUGS (6)
  1. ARAVA [Suspect]
     Indication: PRODUCT USED FOR UNKNOWN INDICATION
     Route: 048
     Dates: start: 2007, end: 20130519
  2. CALCORT [Suspect]
     Indication: PRODUCT USED FOR UNKNOWN INDICATION
     Route: 048
     Dates: start: 2007, end: 20130519
  3. PLAVIX [Suspect]
     Indication: THROMBOSIS PROPHYLAXIS
     Route: 048
     Dates: start: 2007, end: 20130519
  4. IMURAN [Concomitant]
     Indication: DERMATOMYOSITIS
     Route: 048
     Dates: start: 2007, end: 20130519
  5. ACETYLSALICYLIC ACID [Concomitant]
     Indication: PROPHYLAXIS
     Route: 048
     Dates: start: 2007, end: 20130519
  6. METHOTREXATE [Concomitant]
     Dosage: 3 TABLETS ON SATURDAYS AND 3 TABLETS ON SUNDAYS
     Route: 048
     Dates: start: 2007, end: 20130519

REACTIONS (4)
  - Myocardial infarction [Fatal]
  - Arterial occlusive disease [Recovered/Resolved]
  - Arterial occlusive disease [Recovered/Resolved]
  - Drug prescribing error [Unknown]
